FAERS Safety Report 26019607 (Version 1)
Quarter: 2025Q4

REPORT INFORMATION
  Report Type: Spontaneous
  Country: US (occurrence: US)
  Receive Date: 20251110
  Receipt Date: 20251110
  Transmission Date: 20260118
  Serious: Yes (Other)
  Sender: STRIDES
  Company Number: US-STRIDES ARCOLAB LIMITED-2025SP013961

PATIENT
  Age: 30 Year
  Sex: Male

DRUGS (1)
  1. SERTRALINE [Suspect]
     Active Substance: SERTRALINE HYDROCHLORIDE
     Indication: Schizoaffective disorder bipolar type
     Dosage: 4 TIMES
     Route: 065
     Dates: start: 202211, end: 202309

REACTIONS (2)
  - Catatonia [Unknown]
  - Off label use [Unknown]
